FAERS Safety Report 8150729-7 (Version None)
Quarter: 2012Q1

REPORT INFORMATION
  Report Type: 
  Country: None (occurrence: None)
  Receive Date: 20120220
  Receipt Date: 20120209
  Transmission Date: 20120608
  Serious: Yes (Hospitalization)
  Sender: FDA-Public Use
  Company Number: FR-MPIJNJ-2011-06167

PATIENT

DRUGS (14)
  1. CELIPROLOL [Concomitant]
     Indication: CARDIOVASCULAR DISORDER
     Dosage: 200 MG, UNK
  2. BACTRIM [Concomitant]
  3. AMOXICILINA                        /00249601/ [Concomitant]
  4. DEXAMETHASONE [Suspect]
     Indication: MULTIPLE MYELOMA
     Dosage: 20 MG, UNK
     Dates: start: 20110930, end: 20111114
  5. VELCADE [Suspect]
     Indication: MULTIPLE MYELOMA
     Dosage: 1.90 MG, UNK
     Dates: start: 20110930, end: 20111114
  6. TRAMADOL HCL [Concomitant]
     Indication: ANALGESIC THERAPY
     Dosage: 100 MG, UNK
     Route: 048
  7. TRAMADOL HCL [Concomitant]
     Dosage: 50 MG, UNK
  8. REVLIMID [Suspect]
     Indication: MULTIPLE MYELOMA
     Dosage: 25 MG, UNK
     Dates: start: 20110930, end: 20111114
  9. LEVOTHYROXINE SODIUM [Concomitant]
     Indication: HYPOTHYROIDISM
     Dosage: 100 UG, UNK
     Route: 048
  10. EUPANTOL                           /01263201/ [Concomitant]
     Indication: PROPHYLAXIS AGAINST GASTROINTESTINAL ULCER
     Dosage: 20 MG, UNK
     Route: 048
  11. LERCANIDIPINE [Concomitant]
     Indication: CARDIOVASCULAR DISORDER
     Dosage: 10 MG, UNK
     Route: 048
  12. INNOHEP [Concomitant]
     Dosage: 2500 IU, UNK
  13. VALSARTAN [Concomitant]
     Indication: CARDIOVASCULAR DISORDER
     Dosage: 160 MG, UNK
     Route: 048
  14. ZELITREX                           /01269701/ [Concomitant]

REACTIONS (2)
  - DIARRHOEA [None]
  - GENERAL PHYSICAL HEALTH DETERIORATION [None]
